FAERS Safety Report 5756806-X (Version None)
Quarter: 2008Q2

REPORT INFORMATION
  Report Type: 
  Country: None (occurrence: None)
  Receive Date: 20080529
  Receipt Date: 20080515
  Transmission Date: 20081010
  Serious: Yes (Hospitalization)
  Sender: FDA-Public Use
  Company Number: 234056J08USA

PATIENT
  Age: 51 Year
  Sex: Male
  Weight: 70.7611 kg

DRUGS (5)
  1. REBIF [Suspect]
     Indication: MULTIPLE SCLEROSIS
     Dosage: 44 MCG, 3 IN 1 WEEKS, SUBCUTANEOUS
     Route: 058
     Dates: start: 20070430
  2. PREDNISONE [Concomitant]
  3. VICODIN [Concomitant]
  4. SOMA [Concomitant]
  5. IMITREX [Concomitant]

REACTIONS (6)
  - CONFUSIONAL STATE [None]
  - FALL [None]
  - INJECTION SITE PAIN [None]
  - INSOMNIA [None]
  - MALAISE [None]
  - MULTIPLE SCLEROSIS RELAPSE [None]
